FAERS Safety Report 15395702 (Version 1)
Quarter: 2018Q3

REPORT INFORMATION
  Report Type: Spontaneous
  Country: FR (occurrence: FR)
  Receive Date: 20180918
  Receipt Date: 20180918
  Transmission Date: 20181010
  Serious: Yes (Other)
  Sender: FDA-Public Use
  Company Number: FR-JNJFOC-20180905360

PATIENT
  Age: 88 Year
  Sex: Male
  Weight: 81 kg

DRUGS (1)
  1. ZYTIGA [Suspect]
     Active Substance: ABIRATERONE ACETATE
     Indication: PROSTATE CANCER
     Route: 048
     Dates: start: 20180716, end: 20180820

REACTIONS (2)
  - Confusional state [Recovered/Resolved]
  - Self-injurious ideation [Recovered/Resolved]

NARRATIVE: CASE EVENT DATE: 20180816
